FAERS Safety Report 8417938-0 (Version None)
Quarter: 2012Q2

REPORT INFORMATION
  Report Type: 
  Country: None (occurrence: None)
  Receive Date: 20120601
  Receipt Date: 20120601
  Transmission Date: 20120825
  Serious: No
  Sender: FDA-Public Use
  Company Number: None

PATIENT
  Sex: Female

DRUGS (1)
  1. SINGULAIR [Suspect]

REACTIONS (11)
  - HEADACHE [None]
  - EYE PAIN [None]
  - INSOMNIA [None]
  - RASH [None]
  - CHROMATURIA [None]
  - AGITATION [None]
  - PALPITATIONS [None]
  - NAUSEA [None]
  - HYPOGEUSIA [None]
  - CONTUSION [None]
  - PRURITUS [None]
